FAERS Safety Report 6240959-3 (Version None)
Quarter: 2009Q2

REPORT INFORMATION
  Report Type: 
  Country: None (occurrence: None)
  Receive Date: 20090619
  Receipt Date: 20090605
  Transmission Date: 20091009
  Serious: Yes (Death, Hospitalization)
  Sender: FDA-Public Use
  Company Number: KADN20090046

PATIENT
  Age: 44 Year
  Sex: Female

DRUGS (3)
  1. MORPHINE [Suspect]
     Indication: DRUG USE FOR UNKNOWN INDICATION
     Dosage: INGESTION
     Dates: end: 20070101
  2. ALPRAZOLAM [Suspect]
     Indication: DRUG USE FOR UNKNOWN INDICATION
     Dosage: INGESTION
     Dates: end: 20070101
  3. AMITRIPTYLINE HCL [Suspect]
     Indication: DRUG USE FOR UNKNOWN INDICATION
     Dosage: INGESTION
     Dates: end: 20070101

REACTIONS (8)
  - CARDIAC ARREST [None]
  - COMPLETED SUICIDE [None]
  - HYPOTENSION [None]
  - MULTIPLE DRUG OVERDOSE [None]
  - NO THERAPEUTIC RESPONSE [None]
  - PUPIL FIXED [None]
  - SINUS TACHYCARDIA [None]
  - UNRESPONSIVE TO STIMULI [None]
